FAERS Safety Report 14757150 (Version 1)
Quarter: 2018Q2

REPORT INFORMATION
  Report Type: Spontaneous
  Country: SI (occurrence: SI)
  Receive Date: 20180413
  Receipt Date: 20180413
  Transmission Date: 20180711
  Serious: Yes (Other)
  Sender: FDA-Public Use
  Company Number: SI-SA-2018SA101554

PATIENT
  Age: 53 Year
  Sex: Male
  Weight: 83 kg

DRUGS (14)
  1. FLUTICASONE/SALMETEROL [Concomitant]
     Dosage: 50 MG/500 MG 1 INHALATION PER DAY
     Dates: start: 2003
  2. ALPHA D3 [Concomitant]
     Active Substance: ALFACALCIDOL
  3. METHOXY POLYETHYLENE GLYCOL-EPOETIN BETA. [Concomitant]
     Active Substance: METHOXY POLYETHYLENE GLYCOL-EPOETIN BETA
     Dosage: PER NEED MONTHLY
  4. FABRAZYME [Suspect]
     Active Substance: AGALSIDASE BETA
     Indication: FABRY^S DISEASE
     Route: 041
     Dates: start: 20031120
  5. DOXAZOSIN [Concomitant]
     Active Substance: DOXAZOSIN\DOXAZOSIN MESYLATE
  6. ALLOPURINOL. [Concomitant]
     Active Substance: ALLOPURINOL
     Dates: start: 2011
  7. PARICALCITOL. [Concomitant]
     Active Substance: PARICALCITOL
  8. LORATADINE. [Concomitant]
     Active Substance: LORATADINE
     Indication: PREMEDICATION
  9. FABRAZYME [Suspect]
     Active Substance: AGALSIDASE BETA
     Indication: FABRY^S DISEASE
     Route: 041
     Dates: start: 20031120
  10. RAMIPRIL. [Concomitant]
     Active Substance: RAMIPRIL
     Dates: start: 2003
  11. LANTHANUM CARBONATE. [Concomitant]
     Active Substance: LANTHANUM CARBONATE
     Dosage: 2-3 TIMES PER DAY
     Dates: start: 2005
  12. PANTOPRAZOLE [Concomitant]
     Active Substance: PANTOPRAZOLE
  13. PARACETAMOL [Concomitant]
     Active Substance: ACETAMINOPHEN
     Indication: PREMEDICATION
  14. TAMSULOSIN [Concomitant]
     Active Substance: TAMSULOSIN

REACTIONS (2)
  - Myocardial infarction [Recovering/Resolving]
  - Chest pain [Recovering/Resolving]

NARRATIVE: CASE EVENT DATE: 20180403
